FAERS Safety Report 13364192 (Version 1)
Quarter: 2017Q1

REPORT INFORMATION
  Report Type: Spontaneous
  Country: US (occurrence: US)
  Receive Date: 20170323
  Receipt Date: 20170323
  Transmission Date: 20170429
  Serious: No
  Sender: FDA-Public Use
  Company Number: US-009507513-1703USA003845

PATIENT
  Age: 33 Year
  Sex: Female

DRUGS (1)
  1. NEXPLANON [Suspect]
     Active Substance: ETONOGESTREL
     Dosage: 1 ROD, EVERY 3 YEARS
     Route: 059
     Dates: start: 20150901, end: 20170306

REACTIONS (5)
  - Difficulty removing drug implant [Recovered/Resolved]
  - Complication of device removal [Recovered/Resolved]
  - Device breakage [Unknown]
  - Menorrhagia [Unknown]
  - Implant site scar [Unknown]

NARRATIVE: CASE EVENT DATE: 20170306
